FAERS Safety Report 8143286-2 (Version None)
Quarter: 2012Q1

REPORT INFORMATION
  Report Type: 
  Country: None (occurrence: None)
  Receive Date: 20120217
  Receipt Date: 20120209
  Transmission Date: 20120608
  Serious: Yes (Hospitalization)
  Sender: FDA-Public Use
  Company Number: US-BAYER-2011-033689

PATIENT
  Age: 29 Year
  Sex: Female
  Weight: 120 kg

DRUGS (12)
  1. OMEPRAZOLE [Concomitant]
     Indication: GASTROINTESTINAL DISORDER
     Dosage: 20 MG, DAILY
     Route: 048
     Dates: start: 20081024, end: 20090701
  2. IBUPROFEN [Concomitant]
     Indication: PAIN
     Dosage: 2 EVERY 4 TO 6 HOURS
     Route: 048
     Dates: start: 20090403, end: 20090410
  3. ACETAMINOPHEN [Concomitant]
     Indication: PYREXIA
  4. LEXAPRO [Concomitant]
     Indication: DEPRESSION
     Dosage: 20 MG, DAILY
     Route: 048
     Dates: start: 20070213, end: 20090701
  5. ALPRAZOLAM [Concomitant]
     Indication: ANXIETY
     Dosage: 0.25 MG, DAILY
     Route: 048
     Dates: start: 20081218, end: 20110301
  6. IBUPROFEN [Concomitant]
     Indication: PYREXIA
  7. EXFORGE [Concomitant]
     Indication: BLOOD PRESSURE MANAGEMENT
     Dosage: UNK
     Route: 048
     Dates: start: 20081020, end: 20090601
  8. CIPROFLOXACIN [Concomitant]
     Indication: URINARY TRACT INFECTION
     Dosage: 500 MG, BID
     Route: 048
     Dates: start: 20090406, end: 20090415
  9. PHENTERMINE HYDROCHLORIDE [Concomitant]
     Indication: DECREASED APPETITE
     Dosage: 37.5 MG, DAILY
     Route: 048
     Dates: start: 20081220, end: 20090401
  10. ACETAMINOPHEN [Concomitant]
     Indication: PAIN
     Dosage: 2 EVERY 4 TO 6 HOURS
     Route: 048
     Dates: start: 20090403, end: 20090410
  11. AVAPRO [Concomitant]
  12. YAZ [Suspect]
     Indication: CONTRACEPTION
     Dosage: UNK
     Dates: start: 20070801, end: 20090410

REACTIONS (8)
  - PAIN [None]
  - GENERAL PHYSICAL HEALTH DETERIORATION [None]
  - ANXIETY [None]
  - ABDOMINAL PAIN [None]
  - SPLENOMEGALY [None]
  - EMOTIONAL DISTRESS [None]
  - PYREXIA [None]
  - MESENTERIC VEIN THROMBOSIS [None]
